FAERS Safety Report 5132572-6 (Version None)
Quarter: 2006Q4

REPORT INFORMATION
  Report Type: 
  Country: None (occurrence: None)
  Receive Date: 20061020
  Receipt Date: 20061020
  Transmission Date: 20070319
  Serious: Yes (Other)
  Sender: FDA-Public Use
  Company Number: None

PATIENT
  Age: 37 Year
  Sex: Female
  Weight: 77.1115 kg

DRUGS (2)
  1. ZOLOFT [Suspect]
     Indication: PANIC ATTACK
     Dosage: 50 MG  DAILY  PO
     Route: 048
     Dates: start: 20020309, end: 20061010
  2. ZOLOFT [Suspect]
     Indication: PHOBIA
     Dosage: 50 MG  DAILY  PO
     Route: 048
     Dates: start: 20020309, end: 20061010

REACTIONS (14)
  - CRYING [None]
  - DEPRESSION [None]
  - DIZZINESS [None]
  - FEELING ABNORMAL [None]
  - FEELING COLD [None]
  - HEADACHE [None]
  - HYPERHIDROSIS [None]
  - MUSCLE TWITCHING [None]
  - NAUSEA [None]
  - PALPITATIONS [None]
  - PANIC DISORDER [None]
  - PHOTOPSIA [None]
  - SENSORY DISTURBANCE [None]
  - TINNITUS [None]
